FAERS Safety Report 25864150 (Version 2)
Quarter: 2025Q4

REPORT INFORMATION
  Report Type: Spontaneous
  Country: EU (occurrence: EU)
  Receive Date: 20250930
  Receipt Date: 20251205
  Transmission Date: 20260119
  Serious: Yes (Hospitalization, Other)
  Sender: AUROBINDO
  Company Number: EU-AEMPS-1753843

PATIENT
  Age: 60 Year
  Sex: Male
  Weight: 88 kg

DRUGS (6)
  1. GABAPENTIN [Interacting]
     Active Substance: GABAPENTIN
     Indication: Product used for unknown indication
     Dosage: 27 GRAM 1 TOTAL(27 GRAMS SINGLE DOSE)
     Dates: start: 20250811, end: 20250811
  2. TRAMADOL [Interacting]
     Active Substance: TRAMADOL
     Indication: Product used for unknown indication
     Dosage: 3 GRAM 1 TOTAL(3G SINGLE DOSE)
     Dates: start: 20250811, end: 20250811
  3. RIVOTRIL [Interacting]
     Active Substance: CLONAZEPAM
     Indication: Product used for unknown indication
     Dosage: 30 MILLIGRAM (30 MG SINGLE DOSE)
     Dates: start: 20250811, end: 20250811
  4. GABAPENTIN [Concomitant]
     Active Substance: GABAPENTIN
     Indication: Pain
     Dosage: 400 MILLIGRAM, ONCE A DAY (300MG 1-0-0.5)
     Dates: start: 20180523, end: 20250811
  5. TRAMADOL [Concomitant]
     Active Substance: TRAMADOL
     Indication: Pain
     Dosage: 100 MILLIGRAM (50MG 2-0-2)
     Dates: start: 20180604, end: 20250811
  6. RIVOTRIL [Concomitant]
     Active Substance: CLONAZEPAM
     Indication: Product used for unknown indication
     Dosage: 1 MILLIGRAM, TWO TIMES A DAY (0.5MG 1-0-1)
     Dates: start: 20180504, end: 20250811

REACTIONS (5)
  - Hallucination, visual [Recovered/Resolved]
  - Acute kidney injury [Recovered/Resolved]
  - Blood creatine phosphokinase increased [Recovered/Resolved]
  - Somnolence [Recovered/Resolved]
  - Intentional overdose [Recovered/Resolved]

NARRATIVE: CASE EVENT DATE: 20250811
